FAERS Safety Report 22315602 (Version 1)
Quarter: 2023Q2

REPORT INFORMATION
  Report Type: Spontaneous
  Country: US (occurrence: US)
  Receive Date: 20230512
  Receipt Date: 20230512
  Transmission Date: 20230721
  Serious: Yes (Hospitalization)
  Sender: FDA-Public Use
  Company Number: US-Teikoku Pharma USA-TPU2023-00305

PATIENT
  Sex: Female

DRUGS (4)
  1. LIDOCAINE PATCH [Suspect]
     Active Substance: LIDOCAINE
     Indication: Back disorder
     Route: 061
     Dates: start: 202301
  2. LIDOCAINE PATCH [Suspect]
     Active Substance: LIDOCAINE
     Indication: Pain in extremity
     Dates: start: 202304
  3. PHENOBARBITAL [Concomitant]
     Active Substance: PHENOBARBITAL
     Indication: Seizure
  4. DILANTIN [Concomitant]
     Active Substance: PHENYTOIN
     Indication: Seizure

REACTIONS (7)
  - Drug ineffective for unapproved indication [Unknown]
  - Mobility decreased [Unknown]
  - Application site rash [Unknown]
  - Exposure via eye contact [Unknown]
  - Thrombosis [Unknown]
  - Memory impairment [Unknown]
  - Headache [Unknown]

NARRATIVE: CASE EVENT DATE: 20160101
